FAERS Safety Report 7779161-2 (Version None)
Quarter: 2011Q3

REPORT INFORMATION
  Report Type: 
  Country: None (occurrence: None)
  Receive Date: 20110926
  Receipt Date: 20110913
  Transmission Date: 20111222
  Serious: Yes (Death, Other)
  Sender: FDA-Public Use
  Company Number: GB-ELI_LILLY_AND_COMPANY-GB201109004601

PATIENT
  Age: 31 Year
  Sex: Male

DRUGS (2)
  1. FLUOXETINE [Suspect]
     Dosage: 40 MG, QD
  2. FLUOXETINE [Suspect]
     Indication: MYASTHENIC SYNDROME
     Dosage: 20 MG, QD

REACTIONS (2)
  - DRUG INTOLERANCE [None]
  - ROAD TRAFFIC ACCIDENT [None]
